FAERS Safety Report 5071663-5 (Version None)
Quarter: 2006Q3

REPORT INFORMATION
  Report Type: 
  Country: None (occurrence: None)
  Receive Date: 20060801
  Receipt Date: 20060719
  Transmission Date: 20061208
  Serious: Yes (Disabling)
  Sender: FDA-Public Use
  Company Number: 2006073543

PATIENT
  Sex: Female

DRUGS (2)
  1. DOSTINEX [Suspect]
     Indication: PROLACTINOMA
     Dosage: 0.25MG/WEEK (0.5 MG, 1 WK) , ORAL
     Route: 048
     Dates: start: 20010101
  2. ESOMEPRAZOLE MAGNESIUM [Concomitant]

REACTIONS (10)
  - BLOOD ELECTROLYTES DECREASED [None]
  - GASTROOESOPHAGEAL REFLUX DISEASE [None]
  - HYPOCALCAEMIA [None]
  - HYPOKALAEMIA [None]
  - HYPOMAGNESAEMIA [None]
  - IMPAIRED DRIVING ABILITY [None]
  - MUSCLE SPASMS [None]
  - PITUITARY TUMOUR BENIGN [None]
  - VAGINAL DISCHARGE [None]
  - VASCULAR RUPTURE [None]
